FAERS Safety Report 5304620-1 (Version None)
Quarter: 2007Q2

REPORT INFORMATION
  Report Type: 
  Country: None (occurrence: None)
  Receive Date: 20070423
  Receipt Date: 20070416
  Transmission Date: 20071010
  Serious: Yes (Hospitalization)
  Sender: FDA-Public Use
  Company Number: JP-JPN-A200701758

PATIENT
  Age: 60 Year
  Sex: Male

DRUGS (5)
  1. ZEFIX [Suspect]
     Indication: DRUG USE FOR UNKNOWN INDICATION
     Route: 048
     Dates: start: 20070220
  2. UNKNOWN MEDICATION [Concomitant]
     Route: 048
     Dates: start: 20070220
  3. URSO [Concomitant]
     Route: 048
  4. GASTROM [Concomitant]
     Route: 048
     Dates: end: 20070412
  5. FRANDOL [Concomitant]
     Route: 061

REACTIONS (2)
  - GRANULOCYTOPENIA [None]
  - WHITE BLOOD CELL COUNT DECREASED [None]
